FAERS Safety Report 6511381-7 (Version None)
Quarter: 2009Q4

REPORT INFORMATION
  Report Type: 
  Country: None (occurrence: None)
  Receive Date: 20091222
  Receipt Date: 20090326
  Transmission Date: 20100525
  Serious: No
  Sender: FDA-Public Use
  Company Number: US-ASTRAZENECA-2009UW06127

PATIENT
  Age: 87 Year
  Sex: Female

DRUGS (5)
  1. CRESTOR [Suspect]
     Indication: BLOOD CHOLESTEROL
     Route: 048
     Dates: start: 20080401, end: 20090101
  2. POTASSIUM [Concomitant]
  3. ANTI-HYPERTENSIVE [Concomitant]
     Indication: HYPERTENSION
  4. MUSCLE RELAXANT [Concomitant]
     Indication: MUSCLE RELAXANT THERAPY
  5. THYROID PILL [Concomitant]
     Indication: THYROID DISORDER

REACTIONS (5)
  - BACK PAIN [None]
  - MUSCLE STRAIN [None]
  - MUSCULAR WEAKNESS [None]
  - MYALGIA [None]
  - RASH [None]
